FAERS Safety Report 6873823-7 (Version None)
Quarter: 2010Q3

REPORT INFORMATION
  Report Type: 
  Country: None (occurrence: None)
  Receive Date: 20100723
  Receipt Date: 20090330
  Transmission Date: 20110219
  Serious: No
  Sender: FDA-Public Use
  Company Number: US-PFIZER INC-2009176065

PATIENT
  Age: 36 Year
  Sex: Female

DRUGS (1)
  1. CHANTIX [Suspect]
     Dosage: 1 MG, UNK

REACTIONS (3)
  - DEPRESSION [None]
  - FEELING ABNORMAL [None]
  - SOMNOLENCE [None]
